FAERS Safety Report 9469727 (Version 1)
Quarter: 2013Q3

REPORT INFORMATION
  Report Type: Spontaneous
  Country: PH (occurrence: PH)
  Receive Date: 20130822
  Receipt Date: 20130822
  Transmission Date: 20140515
  Serious: Yes (Hospitalization)
  Sender: FDA-Public Use
  Company Number: PHHY2013PH090055

PATIENT
  Sex: Female

DRUGS (5)
  1. LEPONEX [Suspect]
     Indication: SCHIZOPHRENIA
     Dosage: 50 MG, EVERY EVENING
     Route: 048
     Dates: start: 20030818
  2. LEPONEX [Suspect]
     Dosage: 25 MG/ DAY
     Route: 048
  3. LEPONEX [Suspect]
     Dosage: 50 MG, DAILY
     Route: 048
     Dates: end: 20130803
  4. FLUPHENAZINE DECANOATE [Concomitant]
     Dosage: 25 MG/ML, UNK
     Dates: start: 19990818
  5. TAMOXIFEN [Concomitant]
     Indication: BREAST CANCER
     Dosage: UNK

REACTIONS (3)
  - Decreased appetite [Recovered/Resolved]
  - Hyponatraemia [Recovered/Resolved]
  - Confusional state [Recovered/Resolved]
